FAERS Safety Report 9108156 (Version 1)
Quarter: 2013Q1

REPORT INFORMATION
  Report Type: Spontaneous
  Country: US (occurrence: US)
  Receive Date: 20130221
  Receipt Date: 20130221
  Transmission Date: 20140127
  Serious: Yes (Other)
  Sender: FDA-Public Use
  Company Number: US-JNJFOC-20130209785

PATIENT
  Age: 17 Year
  Sex: Female

DRUGS (1)
  1. EDURANT [Suspect]
     Indication: HIV INFECTION
     Route: 048
     Dates: start: 201301

REACTIONS (1)
  - Convulsion [Not Recovered/Not Resolved]
